FAERS Safety Report 7805360-7 (Version None)
Quarter: 2011Q4

REPORT INFORMATION
  Report Type: 
  Country: None (occurrence: None)
  Receive Date: 20111010
  Receipt Date: 20110927
  Transmission Date: 20120403
  Serious: Yes (Other)
  Sender: FDA-Public Use
  Company Number: US-MYLANLABS-2011S1020552

PATIENT
  Age: 66 Year
  Sex: Female

DRUGS (5)
  1. TRAMADOL HCL [Suspect]
     Indication: PAIN
     Dosage: 1 X 50MG EVERY 4-6H AS NEEDED
  2. ASCORBIC ACID [Concomitant]
     Dosage: ONCE DAILY
  3. PROPRANOLOL [Concomitant]
     Indication: PORTAL HYPERTENSION
  4. TIOPRONIN [Concomitant]
     Dosage: INHALE CONTENTS OF 18MICROG CAPSULE DAILY
     Route: 055
  5. SPIRONOLACTONE [Concomitant]
     Indication: ALCOHOLIC LIVER DISEASE

REACTIONS (2)
  - LOSS OF CONSCIOUSNESS [None]
  - ALCOHOL INTERACTION [None]
